FAERS Safety Report 23748775 (Version 1)
Quarter: 2024Q2

REPORT INFORMATION
  Report Type: Spontaneous
  Country: US (occurrence: None)
  Receive Date: 20240409
  Receipt Date: 20240409
  Transmission Date: 20240716
  Serious: No
  Sender: FDA-Public Use
  Company Number: None

PATIENT
  Age: 60 Month
  Sex: Female
  Weight: 72 kg

DRUGS (1)
  1. AZITHROMYCIN ANHYDROUS [Suspect]
     Active Substance: AZITHROMYCIN ANHYDROUS
     Indication: Bronchitis
     Dosage: OTHER QUANTITY : 5 TABLET(S);?FREQUENCY : DAILY;?
     Route: 048
     Dates: start: 20240409, end: 20240409

REACTIONS (2)
  - Product formulation issue [None]
  - Product advertising issue [None]

NARRATIVE: CASE EVENT DATE: 20240409
